FAERS Safety Report 19949378 (Version 1)
Quarter: 2021Q4

REPORT INFORMATION
  Report Type: Spontaneous
  Country: US (occurrence: US)
  Receive Date: 20211013
  Receipt Date: 20211013
  Transmission Date: 20220303
  Serious: Yes (Other)
  Sender: FDA-Public Use
  Company Number: US-GSKCCFUS-CASE-01188385_AE-69584

PATIENT
  Sex: Female

DRUGS (1)
  1. BREO ELLIPTA [Suspect]
     Active Substance: FLUTICASONE FUROATE\VILANTEROL TRIFENATATE
     Indication: Respiratory disorder
     Dosage: UNK200/25

REACTIONS (6)
  - Glaucoma [Unknown]
  - Chest pain [Unknown]
  - Back pain [Unknown]
  - Cough [Unknown]
  - Glucose tolerance impaired [Unknown]
  - Drug ineffective [Unknown]
